FAERS Safety Report 9736999 (Version 2)
Quarter: 2015Q3

REPORT INFORMATION
  Report Type: Spontaneous
  Country: US (occurrence: US)
  Receive Date: 20131206
  Receipt Date: 20150804
  Transmission Date: 20151125
  Serious: No
  Sender: FDA-Public Use
  Company Number: US-GILEAD-2009-0023113

PATIENT
  Age: 52 Year
  Sex: Female
  Weight: 82.55 kg

DRUGS (7)
  1. LETAIRIS [Suspect]
     Active Substance: AMBRISENTAN
     Indication: PULMONARY ARTERIAL HYPERTENSION
     Route: 048
     Dates: start: 20090629
  2. AZATHIOPRINE. [Concomitant]
     Active Substance: AZATHIOPRINE
  3. NIFEDIPINE. [Concomitant]
     Active Substance: NIFEDIPINE
  4. PREDNISONE. [Concomitant]
     Active Substance: PREDNISONE
  5. CLONIDINE. [Concomitant]
     Active Substance: CLONIDINE
  6. ASPIRIN. [Concomitant]
     Active Substance: ASPIRIN
  7. VITAMIN E [Concomitant]
     Active Substance: .ALPHA.-TOCOPHEROL

REACTIONS (1)
  - Abdominal discomfort [Unknown]
